FAERS Safety Report 8964923 (Version 2)
Quarter: 2013Q1

REPORT INFORMATION
  Report Type: Report from Study
  Country: US (occurrence: US)
  Receive Date: 20121213
  Receipt Date: 20130114
  Transmission Date: 20140127
  Serious: Yes (Hospitalization)
  Sender: FDA-Public Use
  Company Number: US-US-EMD SERONO, INC.-7180743

PATIENT
  Sex: Female

DRUGS (2)
  1. REBIF [Suspect]
     Indication: PRODUCT USED FOR UNKNOWN INDICATION
     Route: 058
     Dates: start: 20120809
  2. ANTIBIOTICS [Concomitant]
     Indication: CYSTITIS

REACTIONS (4)
  - Clostridium difficile colitis [Recovering/Resolving]
  - Ulcer haemorrhage [Recovering/Resolving]
  - Cystitis [Recovering/Resolving]
  - Mobility decreased [Recovering/Resolving]
